FAERS Safety Report 11793774 (Version 1)
Quarter: 2015Q4

REPORT INFORMATION
  Report Type: Spontaneous
  Country: US (occurrence: US)
  Receive Date: 20151202
  Receipt Date: 20151202
  Transmission Date: 20160305
  Serious: No
  Sender: FDA-Public Use
  Company Number: US-BAYER-2015-450972

PATIENT
  Sex: Male

DRUGS (1)
  1. CHLORPHENIRAMINE MALEATE. [Suspect]
     Active Substance: CHLORPHENIRAMINE MALEATE
     Dosage: UNK
     Route: 048

REACTIONS (1)
  - Drug tolerance [Unknown]
